FAERS Safety Report 5217374-4 (Version None)
Quarter: 2007Q1

REPORT INFORMATION
  Report Type: 
  Country: None (occurrence: None)
  Receive Date: 20070124
  Receipt Date: 20060123
  Transmission Date: 20070707
  Serious: No
  Sender: FDA-Public Use
  Company Number: US-GLAXOSMITHKLINE-A0590504A

PATIENT
  Age: 39 Year
  Sex: Female

DRUGS (4)
  1. PAXIL CR [Suspect]
     Indication: DEPRESSION
     Dosage: 12.5MG PER DAY
     Route: 048
     Dates: start: 20051201, end: 20060119
  2. LAMICTAL [Concomitant]
  3. GEODON [Concomitant]
  4. XANAX [Concomitant]

REACTIONS (2)
  - BREAST DISCHARGE [None]
  - MENSTRUAL DISORDER [None]
